FAERS Safety Report 22632126 (Version 1)
Quarter: 2023Q2

REPORT INFORMATION
  Report Type: Spontaneous
  Country: AT (occurrence: AT)
  Receive Date: 20230623
  Receipt Date: 20230623
  Transmission Date: 20230722
  Serious: Yes (Other)
  Sender: FDA-Public Use
  Company Number: AT-002147023-NVSC2023AT141500

PATIENT
  Age: 6 Day
  Sex: Male

DRUGS (3)
  1. VORICONAZOLE [Suspect]
     Active Substance: VORICONAZOLE
     Indication: Aspergillus infection
     Dosage: UNK (ON DAY 3)
     Route: 065
  2. VANCOMYCIN [Concomitant]
     Active Substance: VANCOMYCIN
     Indication: Staphylococcal infection
     Dosage: UNK
     Route: 065
  3. VANCOMYCIN [Concomitant]
     Active Substance: VANCOMYCIN
     Dosage: UNK
     Route: 042

REACTIONS (3)
  - Aspergillus infection [Unknown]
  - Condition aggravated [Unknown]
  - Product use issue [Unknown]
